FAERS Safety Report 6202990-3 (Version None)
Quarter: 2009Q2

REPORT INFORMATION
  Report Type: 
  Country: None (occurrence: None)
  Receive Date: 20090520
  Receipt Date: 20090507
  Transmission Date: 20091009
  Serious: Yes (Death)
  Sender: FDA-Public Use
  Company Number: 270186

PATIENT
  Age: 57 Year
  Sex: Male

DRUGS (11)
  1. GENTAMICIN [Suspect]
     Indication: UROSEPSIS
     Dosage: 450 MG, INTRAVENOUS
     Route: 042
     Dates: start: 20090423, end: 20090423
  2. LANSOPRAZOLE [Concomitant]
  3. (EFEXOR /01233801/) [Concomitant]
  4. (PERINDOPRIL) [Concomitant]
  5. (ZOLDEM) [Concomitant]
  6. ASPIRIN [Concomitant]
  7. LIPITOR [Concomitant]
  8. (DIAMICRON MR) [Concomitant]
  9. (GLUCOPHAGE /000082701/) [Concomitant]
  10. (CO-AMOXICLAV /00756801/) [Concomitant]
  11. IRBESARTAN [Concomitant]

REACTIONS (2)
  - CARDIAC ARREST [None]
  - MULTI-ORGAN FAILURE [None]
